FAERS Safety Report 24274274 (Version 2)
Quarter: 2024Q4

REPORT INFORMATION
  Report Type: Spontaneous
  Country: IL (occurrence: IL)
  Receive Date: 20240902
  Receipt Date: 20241011
  Transmission Date: 20250115
  Serious: Yes (Hospitalization, Other)
  Sender: BIOVITRUM
  Company Number: IL-BIOVITRUM-2024-IL-011418

PATIENT
  Age: 15 Year
  Sex: Female
  Weight: 78 kg

DRUGS (2)
  1. AVATROMBOPAG [Suspect]
     Active Substance: AVATROMBOPAG
     Indication: Product used for unknown indication
  2. AVATROMBOPAG [Suspect]
     Active Substance: AVATROMBOPAG
     Route: 048
     Dates: start: 20240813, end: 20240819

REACTIONS (5)
  - Renal vein thrombosis [Recovering/Resolving]
  - Off label use [Recovered/Resolved]
  - Renal impairment [Unknown]
  - Platelet count increased [Unknown]
  - Abdominal pain [Unknown]

NARRATIVE: CASE EVENT DATE: 20240813
